FAERS Safety Report 6422263-3 (Version None)
Quarter: 2009Q4

REPORT INFORMATION
  Report Type: 
  Country: None (occurrence: None)
  Receive Date: 20091030
  Receipt Date: 20091019
  Transmission Date: 20100525
  Serious: Yes (Other)
  Sender: FDA-Public Use
  Company Number: US-JNJCH-2009027690

PATIENT
  Age: 10 Month
  Sex: Male

DRUGS (1)
  1. BENADRYL [Suspect]
     Indication: URTICARIA
     Dosage: TEXT:UNSPECIFIED
     Route: 048

REACTIONS (3)
  - EYE DISORDER [None]
  - OFF LABEL USE [None]
  - RESPIRATORY ARREST [None]
